FAERS Safety Report 20004433 (Version 1)
Quarter: 2021Q4

REPORT INFORMATION
  Report Type: Spontaneous
  Country: ES (occurrence: ES)
  Receive Date: 20211027
  Receipt Date: 20211027
  Transmission Date: 20220303
  Serious: Yes (Hospitalization, Other)
  Sender: FDA-Public Use
  Company Number: ES-009507513-1909ESP003112

PATIENT
  Age: 62 Year
  Sex: Male

DRUGS (7)
  1. DOXORUBICIN [Suspect]
     Active Substance: DOXORUBICIN
     Indication: Mantle cell lymphoma stage IV
     Dosage: UNK
     Dates: start: 201508
  2. VINCRISTINE [Suspect]
     Active Substance: VINCRISTINE
     Indication: Mantle cell lymphoma stage IV
     Dosage: UNK
     Dates: start: 201508
  3. CYCLOPHOSPHAMIDE [Suspect]
     Active Substance: CYCLOPHOSPHAMIDE
     Indication: Mantle cell lymphoma stage IV
     Dosage: UNK
     Dates: start: 201508
  4. NOXAFIL [Suspect]
     Active Substance: POSACONAZOLE
     Indication: Product used for unknown indication
     Dosage: UNK
  5. IBRUTINIB [Suspect]
     Active Substance: IBRUTINIB
     Indication: Mantle cell lymphoma stage IV
     Dosage: UNK
     Dates: start: 201508
  6. GEMCITABINE HYDROCHLORIDE\OXALIPLATIN\RITUXIMAB [Suspect]
     Active Substance: GEMCITABINE HYDROCHLORIDE\OXALIPLATIN\RITUXIMAB
     Indication: Mantle cell lymphoma stage IV
     Dosage: UNK
     Dates: start: 201508
  7. DEXAMETHASONE [Suspect]
     Active Substance: DEXAMETHASONE
     Indication: Mantle cell lymphoma stage IV
     Dosage: UNK
     Dates: start: 201508

REACTIONS (15)
  - Malnutrition [Unknown]
  - Central nervous system lesion [Unknown]
  - Enterobacter bacteraemia [Unknown]
  - Cerebral mass effect [Unknown]
  - Pleural effusion [Unknown]
  - Clostridium difficile infection [Unknown]
  - Cytomegalovirus infection reactivation [Unknown]
  - Pulmonary mass [Unknown]
  - Pericardial effusion [Unknown]
  - Mantle cell lymphoma recurrent [Unknown]
  - Graft versus host disease in gastrointestinal tract [Unknown]
  - Rectal haemorrhage [Unknown]
  - Hepatotoxicity [Unknown]
  - Escherichia bacteraemia [Unknown]
  - Thrombocytopenia [Unknown]

NARRATIVE: CASE EVENT DATE: 20160101
